FAERS Safety Report 4925262-3 (Version None)
Quarter: 2006Q1

REPORT INFORMATION
  Report Type: 
  Country: None (occurrence: None)
  Receive Date: 20060228
  Receipt Date: 20060217
  Transmission Date: 20060701
  Serious: Yes (Hospitalization)
  Sender: FDA-Public Use
  Company Number: CA-JNJFOC-20060204602

PATIENT
  Sex: Female

DRUGS (2)
  1. CHILDREN'S MOTRIN BERRY ORAL [Suspect]
     Route: 048
  2. CHILDREN'S MOTRIN BERRY ORAL [Suspect]
     Route: 048

REACTIONS (1)
  - BLOOD KETONE BODY INCREASED [None]
